FAERS Safety Report 7915179-4 (Version None)
Quarter: 2011Q4

REPORT INFORMATION
  Report Type: 
  Country: None (occurrence: None)
  Receive Date: 20111115
  Receipt Date: 20111104
  Transmission Date: 20120403
  Serious: Yes (Hospitalization, Other)
  Sender: FDA-Public Use
  Company Number: US-JNJFOC-20111012463

PATIENT
  Sex: Male

DRUGS (16)
  1. LOVENOX [Concomitant]
     Route: 058
  2. IPRATROPIUM BROMIDE [Concomitant]
     Route: 065
  3. ZOFRAN [Concomitant]
     Indication: VOMITING
     Route: 042
  4. LEVALBUTEROL HCL [Concomitant]
     Route: 065
  5. OXYCODONE HCL [Concomitant]
     Indication: PAIN
     Route: 048
  6. FLOMAX [Concomitant]
     Route: 048
  7. PREDNISONE [Suspect]
     Indication: PROSTATE CANCER
     Route: 048
     Dates: start: 20110723, end: 20111025
  8. ABIRATERONE ACETATE [Suspect]
     Route: 048
  9. ATORVASTATIN [Concomitant]
     Route: 048
  10. SUNITINIB MALATE [Suspect]
     Indication: PROSTATE CANCER
     Route: 065
     Dates: start: 20111011, end: 20111025
  11. ABIRATERONE ACETATE [Suspect]
     Indication: PROSTATE CANCER
     Route: 048
     Dates: start: 20110723, end: 20111025
  12. ACETAMINOPHEN [Concomitant]
     Indication: PYREXIA
     Route: 048
  13. ZOSYN [Concomitant]
     Route: 065
  14. SENOKOT [Concomitant]
     Indication: CONSTIPATION
     Route: 048
  15. LEVOFLOXACIN [Concomitant]
     Route: 042
  16. ZOFRAN [Concomitant]
     Indication: NAUSEA
     Route: 042

REACTIONS (2)
  - HYPOTENSION [None]
  - PNEUMONIA [None]
